FAERS Safety Report 16835268 (Version 3)
Quarter: 2019Q4

REPORT INFORMATION
  Report Type: Spontaneous
  Country: US (occurrence: US)
  Receive Date: 20190920
  Receipt Date: 20191006
  Transmission Date: 20200122
  Serious: Yes (Other)
  Sender: FDA-Public Use
  Company Number: US-NOVOPROD-684796

PATIENT
  Age: 63 Year
  Sex: Female

DRUGS (2)
  1. TRESIBA [Suspect]
     Active Substance: INSULIN DEGLUDEC
     Indication: TYPE 1 DIABETES MELLITUS
     Dosage: 23 IU (23 UNITS)
     Route: 058
     Dates: start: 201810
  2. TRESIBA [Suspect]
     Active Substance: INSULIN DEGLUDEC
     Dosage: DOSE INCREASED
     Route: 058

REACTIONS (10)
  - Malaise [Recovering/Resolving]
  - Product quality issue [Unknown]
  - Drug ineffective [Unknown]
  - Neuritis [Recovered/Resolved]
  - Glycosylated haemoglobin increased [Unknown]
  - Nausea [Recovering/Resolving]
  - Fatigue [Recovering/Resolving]
  - Blood glucose increased [Recovering/Resolving]
  - Oropharyngeal pain [Recovering/Resolving]
  - Headache [Recovering/Resolving]

NARRATIVE: CASE EVENT DATE: 2019
